FAERS Safety Report 14741915 (Version 4)
Quarter: 2018Q3

REPORT INFORMATION
  Report Type: Spontaneous
  Country: US (occurrence: US)
  Receive Date: 20180410
  Receipt Date: 20180904
  Transmission Date: 20181010
  Serious: No
  Sender: FDA-Public Use
  Company Number: US-LEXICON PHARMACEUTICALS, INC-18-1606-00280

PATIENT
  Sex: Female

DRUGS (22)
  1. WELCHOL [Concomitant]
     Active Substance: COLESEVELAM HYDROCHLORIDE
  2. ALLEGRA [Concomitant]
     Active Substance: FEXOFENADINE HYDROCHLORIDE
  3. SANDOSTATIN [Concomitant]
     Active Substance: OCTREOTIDE ACETATE
  4. LOMOTIL [Concomitant]
     Active Substance: ATROPINE SULFATE\DIPHENOXYLATE HYDROCHLORIDE
  5. ZANTAC [Concomitant]
     Active Substance: RANITIDINE HYDROCHLORIDE
  6. ZENPEP [Concomitant]
     Active Substance: PANCRELIPASE AMYLASE\PANCRELIPASE LIPASE\PANCRELIPASE PROTEASE
  7. HUMIRA [Concomitant]
     Active Substance: ADALIMUMAB
  8. PROBIOTIC [Concomitant]
     Active Substance: PROBIOTICS NOS
  9. ESCITALOPRAM OXALATE. [Concomitant]
     Active Substance: ESCITALOPRAM OXALATE
  10. VICODIN [Concomitant]
     Active Substance: ACETAMINOPHEN\HYDROCODONE BITARTRATE
  11. POTASSIUM [Concomitant]
     Active Substance: POTASSIUM
  12. OXYCODONE [Concomitant]
     Active Substance: OXYCODONE
  13. CULTURELLE [Concomitant]
     Active Substance: LACTOBACILLUS RHAMNOSUS
  14. MULTI COMPLETE [Concomitant]
  15. PRILOSEC [Concomitant]
     Active Substance: OMEPRAZOLE MAGNESIUM
  16. LACTAID [Concomitant]
     Active Substance: LACTASE
  17. TELOTRISTAT ETHYL [Suspect]
     Active Substance: TELOTRISTAT ETHYL
     Indication: CARCINOID SYNDROME
     Route: 048
     Dates: start: 20170623
  18. ATIVAN [Concomitant]
     Active Substance: LORAZEPAM
  19. GABAPENTIN. [Concomitant]
     Active Substance: GABAPENTIN
  20. PEPTO?BISMOL [Concomitant]
     Active Substance: BISMUTH SUBSALICYLATE
  21. ZOFRAN [Concomitant]
     Active Substance: ONDANSETRON HYDROCHLORIDE
  22. GAS RELIEF [Concomitant]
     Active Substance: DIMETHICONE

REACTIONS (3)
  - Urinary tract infection [Not Recovered/Not Resolved]
  - Drooling [Unknown]
  - Abdominal discomfort [Not Recovered/Not Resolved]
